FAERS Safety Report 10215576 (Version 2)
Quarter: 2014Q2

REPORT INFORMATION
  Report Type: Spontaneous
  Country: CH (occurrence: CH)
  Receive Date: 20140604
  Receipt Date: 20140604
  Transmission Date: 20141212
  Serious: Yes (Other)
  Sender: FDA-Public Use
  Company Number: CH-ROCHE-1381729

PATIENT
  Age: 51 Year
  Sex: Female
  Weight: 76 kg

DRUGS (3)
  1. HERCEPTIN [Suspect]
     Indication: BREAST CANCER
     Route: 042
     Dates: start: 20130923
  2. QUILONORM (SWITZERLAND) [Concomitant]
  3. TAMOXIFEN [Concomitant]
     Route: 065
     Dates: start: 20131104

REACTIONS (1)
  - Antipsychotic drug level increased [Recovering/Resolving]
